FAERS Safety Report 9204897 (Version 1)
Quarter: 2013Q2

REPORT INFORMATION
  Report Type: Spontaneous
  Country: US (occurrence: US)
  Receive Date: 20130402
  Receipt Date: 20130402
  Transmission Date: 20140414
  Serious: Yes (Other)
  Sender: FDA-Public Use
  Company Number: CHPA2013US005390

PATIENT
  Age: 60 Year
  Sex: Male

DRUGS (7)
  1. CONTROL PLP [Suspect]
     Indication: SMOKING CESSATION THERAPY
     Dosage: 7 MG, QD
     Route: 062
     Dates: start: 2011
  2. CONTROL PLP [Suspect]
     Dosage: 14 MG, QD
     Route: 062
     Dates: start: 2011
  3. CONTROL PLP [Suspect]
     Dosage: 21 MG, QD
     Route: 062
     Dates: start: 2011
  4. BUSPAR [Concomitant]
     Indication: DEPRESSION
  5. TRAZODONE [Concomitant]
     Indication: DEPRESSION
  6. ZOLOFT [Concomitant]
     Indication: DEPRESSION
  7. AVIDART [Concomitant]
     Indication: DEPRESSION

REACTIONS (2)
  - Mental disorder [Recovered/Resolved]
  - Expired drug administered [Unknown]
